FAERS Safety Report 6825111-2 (Version None)
Quarter: 2010Q3

REPORT INFORMATION
  Report Type: 
  Country: None (occurrence: None)
  Receive Date: 20100708
  Receipt Date: 20061223
  Transmission Date: 20110219
  Serious: No
  Sender: FDA-Public Use
  Company Number: US-PFIZER INC-2007001396

PATIENT
  Sex: Male
  Weight: 74.84 kg

DRUGS (4)
  1. CHANTIX [Suspect]
     Indication: SMOKING CESSATION THERAPY
     Dates: start: 20061221
  2. CYCLOBENZAPRINE [Concomitant]
     Indication: BONE PAIN
  3. ETODOLAC [Concomitant]
     Indication: BONE PAIN
  4. VITAMINS [Concomitant]

REACTIONS (1)
  - RASH [None]
